FAERS Safety Report 13037234 (Version 1)
Quarter: 2016Q4

REPORT INFORMATION
  Report Type: Spontaneous
  Country: HR (occurrence: HR)
  Receive Date: 20161216
  Receipt Date: 20161216
  Transmission Date: 20170207
  Serious: Yes (Other)
  Sender: FDA-Public Use
  Company Number: HR-PFIZER INC-2016576794

PATIENT
  Age: 35 Year
  Sex: Male
  Weight: 86 kg

DRUGS (2)
  1. MOVALIS [Concomitant]
     Active Substance: MELOXICAM
     Indication: ANKYLOSING SPONDYLITIS
     Dosage: 15 MG, 1X/DAY
     Route: 048
  2. SALAZOPYRIN EN [Suspect]
     Active Substance: SULFASALAZINE
     Indication: ANKYLOSING SPONDYLITIS
     Dosage: 500 MG, 2X/DAY
     Route: 048
     Dates: start: 2016

REACTIONS (2)
  - Spermatozoa progressive motility decreased [Not Recovered/Not Resolved]
  - Spermatozoa morphology abnormal [Not Recovered/Not Resolved]

NARRATIVE: CASE EVENT DATE: 2016
